FAERS Safety Report 6255243-1 (Version None)
Quarter: 2009Q2

REPORT INFORMATION
  Report Type: 
  Country: None (occurrence: None)
  Receive Date: 20090630
  Receipt Date: 20090624
  Transmission Date: 20091009
  Serious: Yes (Hospitalization, Other)
  Sender: FDA-Public Use
  Company Number: 1000005529

PATIENT
  Age: 41 Year
  Sex: Female

DRUGS (13)
  1. CITALOPRAM HYDROBROMIDE [Suspect]
     Dosage: (20 MG, ONCE)
     Dates: start: 20070512, end: 20070512
  2. ATENOLOL [Suspect]
     Dosage: (25 MG, ONCE)
     Dates: start: 20070512, end: 20070512
  3. CLOZAPINE [Suspect]
     Dosage: (150 MG, ONCE)
     Dates: start: 20070512, end: 20070512
  4. EGAZIL [Suspect]
     Dosage: (0.2 MG, ONCE)
     Dates: start: 20070512, end: 20070512
  5. GENOTROPIN [Suspect]
     Indication: HYPOPITUITARISM
     Dosage: 0.9 MG (0.9 MG, 1 IN 1 D), SUBCUTANEOUS
     Route: 058
     Dates: start: 20021204
  6. ALVEDON [Concomitant]
  7. BEHEPAN [Concomitant]
  8. DEXOFEN [Concomitant]
  9. FEMASEKVENS [Concomitant]
  10. HYDROCORTISONE [Concomitant]
  11. LEVOTHYROXINE SODIUM [Concomitant]
  12. SIMVASTATIN [Concomitant]
  13. ASPIRIN [Concomitant]

REACTIONS (3)
  - DRUG ADMINISTRATION ERROR [None]
  - DRUG TOXICITY [None]
  - LOSS OF CONSCIOUSNESS [None]
